FAERS Safety Report 4614198-3 (Version None)
Quarter: 2005Q1

REPORT INFORMATION
  Report Type: 
  Country: None (occurrence: None)
  Receive Date: 20050316
  Receipt Date: 20050307
  Transmission Date: 20050727
  Serious: No
  Sender: FDA-Public Use
  Company Number: 2005UW03705

PATIENT
  Age: 82 Year
  Sex: Male

DRUGS (6)
  1. CRESTOR [Suspect]
     Dosage: 10 MG QD PO
     Route: 048
  2. ACCURETIC [Concomitant]
  3. AZITHROMYCIN [Concomitant]
  4. CEFUROXIME [Concomitant]
  5. ASPIRIN ENTERIC COATED K.P. [Concomitant]
  6. NIFEDIPINE [Concomitant]

REACTIONS (7)
  - ASTHENIA [None]
  - COUGH [None]
  - FATIGUE [None]
  - FEELING ABNORMAL [None]
  - PNEUMONIA [None]
  - PYREXIA [None]
  - RHABDOMYOLYSIS [None]
